FAERS Safety Report 21050201 (Version 1)
Quarter: 2022Q3

REPORT INFORMATION
  Report Type: Spontaneous
  Country: US (occurrence: US)
  Receive Date: 20220706
  Receipt Date: 20220706
  Transmission Date: 20221026
  Serious: Yes (Other)
  Sender: FDA-Public Use
  Company Number: US-drreddys-LIT/USA/22/0151780

PATIENT
  Age: 18 Year
  Sex: Female

DRUGS (28)
  1. LEVETIRACETAM [Suspect]
     Active Substance: LEVETIRACETAM
     Indication: Ataxia
  2. LEVETIRACETAM [Suspect]
     Active Substance: LEVETIRACETAM
     Indication: Neuropathy peripheral
  3. LEVETIRACETAM [Suspect]
     Active Substance: LEVETIRACETAM
     Indication: Dysarthria
  4. LEVETIRACETAM [Suspect]
     Active Substance: LEVETIRACETAM
     Indication: Ophthalmoplegia
  5. VALPROIC ACID [Suspect]
     Active Substance: VALPROIC ACID
     Indication: Ataxia
  6. VALPROIC ACID [Suspect]
     Active Substance: VALPROIC ACID
     Indication: Neuropathy peripheral
  7. VALPROIC ACID [Suspect]
     Active Substance: VALPROIC ACID
     Indication: Dysarthria
  8. VALPROIC ACID [Suspect]
     Active Substance: VALPROIC ACID
     Indication: Ophthalmoplegia
  9. OXCARBAZEPINE [Suspect]
     Active Substance: OXCARBAZEPINE
     Indication: Ataxia
  10. OXCARBAZEPINE [Suspect]
     Active Substance: OXCARBAZEPINE
     Indication: Neuropathy peripheral
  11. OXCARBAZEPINE [Suspect]
     Active Substance: OXCARBAZEPINE
     Indication: Dysarthria
  12. OXCARBAZEPINE [Suspect]
     Active Substance: OXCARBAZEPINE
     Indication: Ophthalmoplegia
  13. LACOSAMIDE [Suspect]
     Active Substance: LACOSAMIDE
     Indication: Ataxia
  14. LACOSAMIDE [Suspect]
     Active Substance: LACOSAMIDE
     Indication: Neuropathy peripheral
  15. LACOSAMIDE [Suspect]
     Active Substance: LACOSAMIDE
     Indication: Dysarthria
  16. LACOSAMIDE [Suspect]
     Active Substance: LACOSAMIDE
     Indication: Ophthalmoplegia
  17. CLONAZEPAM [Suspect]
     Active Substance: CLONAZEPAM
     Indication: Ataxia
  18. CLONAZEPAM [Suspect]
     Active Substance: CLONAZEPAM
     Indication: Neuropathy peripheral
  19. CLONAZEPAM [Suspect]
     Active Substance: CLONAZEPAM
     Indication: Dysarthria
  20. CLONAZEPAM [Suspect]
     Active Substance: CLONAZEPAM
     Indication: Ophthalmoplegia
  21. PHENYTOIN [Suspect]
     Active Substance: PHENYTOIN
     Indication: Ataxia
  22. PHENYTOIN [Suspect]
     Active Substance: PHENYTOIN
     Indication: Neuropathy peripheral
  23. PHENYTOIN [Suspect]
     Active Substance: PHENYTOIN
     Indication: Dysarthria
  24. PHENYTOIN [Suspect]
     Active Substance: PHENYTOIN
     Indication: Ophthalmoplegia
  25. TOPIRAMATE [Suspect]
     Active Substance: TOPIRAMATE
     Indication: Ataxia
  26. TOPIRAMATE [Suspect]
     Active Substance: TOPIRAMATE
     Indication: Neuropathy peripheral
  27. TOPIRAMATE [Suspect]
     Active Substance: TOPIRAMATE
     Indication: Dysarthria
  28. TOPIRAMATE [Suspect]
     Active Substance: TOPIRAMATE
     Indication: Ophthalmoplegia

REACTIONS (4)
  - Hypertransaminasaemia [Unknown]
  - Ataxia [Unknown]
  - Sedation [Unknown]
  - Diplopia [Unknown]
